FAERS Safety Report 9305971 (Version 1)
Quarter: 2013Q2

REPORT INFORMATION
  Report Type: Report from Study
  Country: GB (occurrence: GB)
  Receive Date: 20130523
  Receipt Date: 20130523
  Transmission Date: 20140414
  Serious: Yes (Hospitalization)
  Sender: FDA-Public Use
  Company Number: PHHY2013GB050185

PATIENT
  Age: 52 Year
  Sex: Male
  Weight: 109 kg

DRUGS (5)
  1. OXALIPLATIN [Suspect]
     Indication: COLORECTAL CANCER METASTATIC
     Dosage: 190 MG DAILY
     Route: 042
     Dates: start: 20130307
  2. LEUCOVORIN CALCIUM [Suspect]
     Indication: COLON CANCER METASTATIC
     Dosage: 900 MG DAILY
     Route: 042
     Dates: start: 20130307
  3. 5-FLUOROURACIL [Suspect]
     Indication: COLORECTAL CANCER METASTATIC
     Dosage: 900 MG DAILY
     Route: 040
     Dates: start: 20130307
  4. 5-FLUOROURACIL [Suspect]
     Dosage: 5350 MG, DAILY
     Route: 042
     Dates: start: 20130307
  5. BEVACIZUMAB [Suspect]
     Indication: COLORECTAL CANCER METASTATIC
     Dosage: 543.5 MG DAILY
     Route: 042
     Dates: start: 20130307, end: 20130321

REACTIONS (2)
  - Febrile neutropenia [Recovering/Resolving]
  - Neutropenic sepsis [Recovering/Resolving]
